FAERS Safety Report 4302604-3 (Version None)
Quarter: 2004Q1

REPORT INFORMATION
  Report Type: 
  Country: None (occurrence: None)
  Receive Date: 20040218
  Receipt Date: 20030129
  Transmission Date: 20041129
  Serious: Yes (Hospitalization)
  Sender: FDA-Public Use
  Company Number: 8000525

PATIENT
  Age: 62 Year
  Sex: Male
  Weight: 106.8 kg

DRUGS (6)
  1. KEPPRA [Suspect]
     Indication: CONVULSION
     Dosage: 1500 MG PO
     Route: 048
     Dates: start: 20021213, end: 20021225
  2. PHENOBARBITAL TAB [Concomitant]
  3. DILANTIN [Concomitant]
  4. VITAMIN B-12 [Concomitant]
  5. GLUCOPHAGE [Concomitant]
  6. TOPAMAX [Concomitant]

REACTIONS (6)
  - DEPRESSION [None]
  - FATIGUE [None]
  - GAIT DISTURBANCE [None]
  - HALLUCINATION [None]
  - INSOMNIA [None]
  - SUICIDAL IDEATION [None]
